FAERS Safety Report 5921034-1 (Version None)
Quarter: 2008Q4

REPORT INFORMATION
  Report Type: 
  Country: None (occurrence: None)
  Receive Date: 20081014
  Receipt Date: 20080930
  Transmission Date: 20090506
  Serious: Yes (Hospitalization)
  Sender: FDA-Public Use
  Company Number: UTC-000264

PATIENT
  Age: 34 Year
  Sex: Female

DRUGS (4)
  1. REMODULIN [Suspect]
     Indication: PULMONARY ARTERIAL HYPERTENSION
     Dosage: 50.4 UG/KG (0.035 UG/KG, PUMP RATE: 400UL/H), INTRAVENOUS, SUBCUTANEOUS
     Dates: start: 20071120
  2. FRAGMIN [Concomitant]
  3. WARFARIN SODIUM [Concomitant]
  4. REVATIO [Concomitant]

REACTIONS (1)
  - ANAEMIA [None]
